FAERS Safety Report 6744009-1 (Version None)
Quarter: 2010Q2

REPORT INFORMATION
  Report Type: 
  Country: None (occurrence: None)
  Receive Date: 20100527
  Receipt Date: 20100519
  Transmission Date: 20101027
  Serious: Yes (Hospitalization)
  Sender: FDA-Public Use
  Company Number: A0783343A

PATIENT
  Age: 48 Year
  Sex: Female

DRUGS (1)
  1. AVANDIA [Suspect]
     Dosage: 8U TWICE PER DAY
     Route: 048
     Dates: start: 20001009, end: 20070501

REACTIONS (4)
  - CARDIAC FAILURE CONGESTIVE [None]
  - CHEST PAIN [None]
  - MYOCARDIAL INFARCTION [None]
  - THROMBOSIS [None]
